FAERS Safety Report 15736201 (Version 2)
Quarter: 2018Q4

REPORT INFORMATION
  Report Type: Report from Study
  Country: GB (occurrence: GB)
  Receive Date: 20181218
  Receipt Date: 20181227
  Transmission Date: 20190205
  Serious: No
  Sender: FDA-Public Use
  Company Number: GB-AMGEN-GBRNI2018180655

PATIENT

DRUGS (1)
  1. ETANERCEPT [Suspect]
     Active Substance: ETANERCEPT
     Indication: EXPOSURE DURING PREGNANCY
     Dosage: UNK
     Route: 064
     Dates: start: 20030930

REACTIONS (1)
  - Maternal exposure during pregnancy [Unknown]
